FAERS Safety Report 5300018-0 (Version None)
Quarter: 2007Q2

REPORT INFORMATION
  Report Type: 
  Country: None (occurrence: None)
  Receive Date: 20070410
  Receipt Date: 20070328
  Transmission Date: 20071010
  Serious: Yes (Other)
  Sender: FDA-Public Use
  Company Number: B0462843A

PATIENT
  Age: 30 Year
  Sex: Female

DRUGS (2)
  1. LAMICTAL [Suspect]
     Indication: EPILEPSY
     Dosage: 50 MG / PER DAY / ORAL
     Route: 048
     Dates: start: 20050901
  2. MEDROXYPROGESTERONE ACE. [Concomitant]

REACTIONS (2)
  - OVARIAN CYST [None]
  - VAGINAL HAEMORRHAGE [None]
